FAERS Safety Report 8030862-0 (Version None)
Quarter: 2012Q1

REPORT INFORMATION
  Report Type: 
  Country: None (occurrence: None)
  Receive Date: 20120105
  Receipt Date: 20120104
  Transmission Date: 20120608
  Serious: Yes (Hospitalization, Other)
  Sender: FDA-Public Use
  Company Number: VAL_00636_2011

PATIENT
  Age: 64 Year
  Sex: Female
  Weight: 36 kg

DRUGS (4)
  1. MIRTAZAPINE [Concomitant]
  2. CARBAMAZEPINE [Suspect]
     Indication: BEHAVIOURAL AND PSYCHIATRIC SYMPTOMS OF DEMENTIA
     Dosage: 100 MG, TID
  3. CARBAMAZEPINE [Suspect]
     Indication: ANXIETY
     Dosage: 100 MG, TID
  4. OLANZAPINE [Suspect]
     Indication: FRONTOTEMPORAL DEMENTIA
     Dosage: 5 MG, QD, DF

REACTIONS (6)
  - CHRONIC OBSTRUCTIVE PULMONARY DISEASE [None]
  - ENTERITIS [None]
  - FACE OEDEMA [None]
  - DRUG RASH WITH EOSINOPHILIA AND SYSTEMIC SYMPTOMS [None]
  - OEDEMA PERIPHERAL [None]
  - INFECTION [None]
